FAERS Safety Report 8339367-0 (Version None)
Quarter: 2012Q2

REPORT INFORMATION
  Report Type: 
  Country: None (occurrence: None)
  Receive Date: 20120507
  Receipt Date: 20120501
  Transmission Date: 20120825
  Serious: Yes (Death)
  Sender: FDA-Public Use
  Company Number: US-US-EMD SERONO, INC.-7014587

PATIENT
  Sex: Female

DRUGS (4)
  1. REBIF [Suspect]
     Indication: MULTIPLE SCLEROSIS
     Dates: start: 20020408, end: 20060101
  2. TYSABRI [Concomitant]
     Dates: end: 20110712
  3. TYSABRI [Concomitant]
     Indication: PRODUCT USED FOR UNKNOWN INDICATION
     Dates: start: 20060101, end: 20060101
  4. REBIF [Suspect]
     Dates: end: 20090401

REACTIONS (2)
  - METASTASES TO LIVER [None]
  - BREAST CANCER [None]
